FAERS Safety Report 7398436-2 (Version None)
Quarter: 2011Q2

REPORT INFORMATION
  Report Type: 
  Country: None (occurrence: None)
  Receive Date: 20110407
  Receipt Date: 20110325
  Transmission Date: 20111010
  Serious: Yes (Hospitalization)
  Sender: FDA-Public Use
  Company Number: FR-BIOGENIDEC-2010BI043065

PATIENT
  Age: 40 Year
  Sex: Female

DRUGS (7)
  1. DEPAKENE [Concomitant]
     Indication: EPILEPSY
  2. OMEXEL [Concomitant]
  3. TYSABRI [Suspect]
     Route: 042
     Dates: start: 20100701
  4. URBANYL [Concomitant]
     Dates: start: 20100523
  5. URBANYL [Concomitant]
  6. CERIS [Concomitant]
  7. TYSABRI [Suspect]
     Indication: MULTIPLE SCLEROSIS
     Route: 042
     Dates: start: 20081208, end: 20100507

REACTIONS (1)
  - EPILEPSY [None]
